FAERS Safety Report 17658805 (Version 4)
Quarter: 2024Q4

REPORT INFORMATION
  Report Type: Spontaneous
  Country: DE (occurrence: DE)
  Receive Date: 20200413
  Receipt Date: 20241116
  Transmission Date: 20250114
  Serious: Yes (Other)
  Sender: AUROBINDO
  Company Number: DE-DCGMA-20184577

PATIENT
  Age: 34 Year
  Sex: Male
  Weight: 80 kg

DRUGS (3)
  1. FINASTERIDE [Suspect]
     Active Substance: FINASTERIDE
     Indication: Alopecia
     Dosage: 1.25 MILLIGRAM, ONCE A DAY
     Route: 048
     Dates: start: 2010, end: 202001
  2. FINASTERIDE [Suspect]
     Active Substance: FINASTERIDE
     Dosage: 1.25 MILLIGRAM (2 DAYS)
     Route: 048
     Dates: start: 202001, end: 202001
  3. CITALOPRAM [Concomitant]
     Active Substance: CITALOPRAM
     Indication: Depression
     Dosage: 20 MILLIGRAM (PATIENT INCREASED THE DOSAGE OF CITALOPRAM TO 30 MG/D SHORT-TERM ON HIS OWN)
     Route: 048
     Dates: start: 2010

REACTIONS (10)
  - Mental impairment [Recovered/Resolved]
  - Suicidal ideation [Recovered/Resolved]
  - Fatigue [Recovered/Resolved]
  - Mood altered [Recovered/Resolved]
  - Panic attack [Recovered/Resolved]
  - Brain fog [Recovered/Resolved]
  - Depression [Recovered/Resolved]
  - Hyperhidrosis [Recovered/Resolved]
  - Libido disorder [Recovered/Resolved]
  - Withdrawal syndrome [Recovered/Resolved]

NARRATIVE: CASE EVENT DATE: 20200101
